FAERS Safety Report 6938410-0 (Version None)
Quarter: 2010Q3

REPORT INFORMATION
  Report Type: 
  Country: None (occurrence: None)
  Receive Date: 20100824
  Receipt Date: 20100824
  Transmission Date: 20110219
  Serious: Yes (Death)
  Sender: FDA-Public Use
  Company Number: None

PATIENT
  Age: 14 Month
  Sex: Male

DRUGS (1)
  1. CONCENTRATED TYLENOL INFANT DROPS [Suspect]

REACTIONS (4)
  - DEHYDRATION [None]
  - GASTROENTERITIS VIRAL [None]
  - PRODUCT QUALITY ISSUE [None]
  - SUDDEN DEATH [None]
